FAERS Safety Report 6254213-7 (Version None)
Quarter: 2009Q3

REPORT INFORMATION
  Report Type: 
  Country: None (occurrence: None)
  Receive Date: 20090701
  Receipt Date: 20090701
  Transmission Date: 20100115
  Serious: Yes (Life-Threatening, Hospitalization)
  Sender: FDA-Public Use
  Company Number: None

PATIENT
  Age: 83 Year
  Sex: Female
  Weight: 92.9874 kg

DRUGS (1)
  1. TORSEMIDE 20MG APOTEX [Suspect]
     Indication: CARDIAC FAILURE CONGESTIVE
     Dosage: 4 TABLETS BY MOUTH EVERY MORNING (DR HAD INCREASED TO 6 TABS)
     Dates: start: 20090325, end: 20090610

REACTIONS (3)
  - DRUG INEFFECTIVE [None]
  - FLUID RETENTION [None]
  - PRODUCT QUALITY ISSUE [None]
